FAERS Safety Report 7699974-5 (Version None)
Quarter: 2011Q3

REPORT INFORMATION
  Report Type: 
  Country: None (occurrence: None)
  Receive Date: 20110822
  Receipt Date: 20110812
  Transmission Date: 20111222
  Serious: Yes (Hospitalization)
  Sender: FDA-Public Use
  Company Number: FR-ALVOGEN-2011AL000047

PATIENT
  Age: 79 Year
  Sex: Male

DRUGS (3)
  1. FURADANTIN [Suspect]
     Indication: PROSTATITIS
     Dosage: 6 DOSAGE FORMS DAILY PER OS
     Route: 048
     Dates: start: 20101127, end: 20101226
  2. AVODART [Concomitant]
     Indication: PROSTATIC ADENOMA
  3. BACTRIM [Suspect]
     Indication: PROSTATITIS
     Dosage: 2 DF DAILY PER OS
     Route: 048
     Dates: start: 20101127, end: 20101221

REACTIONS (2)
  - DRUG RASH WITH EOSINOPHILIA AND SYSTEMIC SYMPTOMS [None]
  - ACUTE RESPIRATORY DISTRESS SYNDROME [None]
